FAERS Safety Report 12457318 (Version 1)
Quarter: 2016Q2

REPORT INFORMATION
  Report Type: Spontaneous
  Country: US (occurrence: US)
  Receive Date: 20160610
  Receipt Date: 20160610
  Transmission Date: 20160815
  Serious: Yes (Other)
  Sender: FDA-Public Use
  Company Number: US-BAYER-2016-113915

PATIENT
  Age: 54 Year
  Sex: Female

DRUGS (2)
  1. COPPERTONE ULTRAGUARD SPF 70 [Suspect]
     Active Substance: AVOBENZONE\HOMOSALATE\OCTISALATE\OCTOCRYLENE
     Dosage: 1 DF, ONCE
     Route: 061
     Dates: start: 20160531, end: 20160531
  2. LISINOPRIL. [Concomitant]
     Active Substance: LISINOPRIL

REACTIONS (4)
  - Hypersensitivity [Not Recovered/Not Resolved]
  - Rash vesicular [Not Recovered/Not Resolved]
  - Urticaria [Not Recovered/Not Resolved]
  - Chemical burn of skin [Not Recovered/Not Resolved]

NARRATIVE: CASE EVENT DATE: 20160601
